FAERS Safety Report 20774687 (Version 1)
Quarter: 2022Q2

REPORT INFORMATION
  Report Type: Spontaneous
  Country: US (occurrence: None)
  Receive Date: 20220501
  Receipt Date: 20220501
  Transmission Date: 20220721
  Serious: Yes (Other)
  Sender: FDA-Public Use
  Company Number: None

PATIENT

DRUGS (1)
  1. ROCKLATAN [Suspect]
     Active Substance: LATANOPROST\NETARSUDIL MESYLATE
     Indication: Glaucoma
     Dosage: OTHER QUANTITY : 1 DROP(S);?FREQUENCY : DAILY;?
     Route: 047

REACTIONS (7)
  - Macular oedema [None]
  - Condition aggravated [None]
  - Ocular hyperaemia [None]
  - Eye irritation [None]
  - Eye pain [None]
  - Visual impairment [None]
  - Eye irritation [None]

NARRATIVE: CASE EVENT DATE: 20211201
